FAERS Safety Report 16438096 (Version 2)
Quarter: 2020Q4

REPORT INFORMATION
  Report Type: Spontaneous
  Country: US (occurrence: US)
  Receive Date: 20190617
  Receipt Date: 20201223
  Transmission Date: 20210113
  Serious: No
  Sender: FDA-Public Use
  Company Number: US-CELGENEUS-USA-20190605281

PATIENT
  Sex: Male
  Weight: 89.89 kg

DRUGS (3)
  1. POMALYST [Suspect]
     Active Substance: POMALIDOMIDE
     Dosage: 2 MILLIGRAM
     Route: 048
     Dates: start: 201911
  2. POMALYST [Suspect]
     Active Substance: POMALIDOMIDE
     Dosage: 2-3 MILLIGRAM
     Route: 048
     Dates: start: 201911
  3. POMALYST [Suspect]
     Active Substance: POMALIDOMIDE
     Indication: PLASMA CELL MYELOMA
     Dosage: 3 MILLIGRAM
     Route: 048
     Dates: start: 201707

REACTIONS (4)
  - Penile abscess [Unknown]
  - Rash [Not Recovered/Not Resolved]
  - Loss of libido [Not Recovered/Not Resolved]
  - Furuncle [Unknown]
